FAERS Safety Report 6413845-3 (Version None)
Quarter: 2009Q4

REPORT INFORMATION
  Report Type: 
  Country: None (occurrence: None)
  Receive Date: 20091026
  Receipt Date: 20091016
  Transmission Date: 20100525
  Serious: Yes (Other)
  Sender: FDA-Public Use
  Company Number: A0812202A

PATIENT
  Sex: Female

DRUGS (2)
  1. LAMICTAL [Suspect]
     Indication: CONVULSION
     Dates: start: 20030101, end: 20090101
  2. NO CONCURRENT MEDICATION [Concomitant]

REACTIONS (6)
  - ALLERGY TO ANIMAL [None]
  - CAESAREAN SECTION [None]
  - DRUG EXPOSURE DURING PREGNANCY [None]
  - FOOD ALLERGY [None]
  - HYPERSENSITIVITY [None]
  - PNEUMOTHORAX [None]
